FAERS Safety Report 5797207-8 (Version None)
Quarter: 2008Q3

REPORT INFORMATION
  Report Type: 
  Country: None (occurrence: None)
  Receive Date: 20080701
  Receipt Date: 20080619
  Transmission Date: 20090109
  Serious: Yes (Other)
  Sender: FDA-Public Use
  Company Number: JP-PFIZER INC-2008051942

PATIENT
  Age: 19 Year
  Sex: Female

DRUGS (2)
  1. SOLANAX [Suspect]
     Indication: DEPRESSION
     Dosage: DAILY DOSE:1.2MG
     Route: 048
     Dates: start: 20080603, end: 20080613
  2. LUDIOMIL [Suspect]
     Indication: DEPRESSION
     Route: 048
     Dates: start: 20080603, end: 20080613

REACTIONS (2)
  - ERYTHEMA MULTIFORME [None]
  - MALAISE [None]
